FAERS Safety Report 18444587 (Version 2)
Quarter: 2020Q4

REPORT INFORMATION
  Report Type: Spontaneous
  Country: BR (occurrence: BR)
  Receive Date: 20201030
  Receipt Date: 20201120
  Transmission Date: 20210114
  Serious: Yes (Other)
  Sender: FDA-Public Use
  Company Number: BR-SA-2020SA274310

PATIENT

DRUGS (2)
  1. MYOZYME [Suspect]
     Active Substance: ALGLUCOSIDASE ALFA
     Indication: GLYCOGEN STORAGE DISEASE TYPE II
     Dosage: 15.18 MG/KG, QOW
     Route: 041
     Dates: start: 20201002
  2. IMMUNOGLOBULINS NOS [Concomitant]
     Active Substance: IMMUNE GLOBULIN NOS
     Indication: AUTOIMMUNE DISORDER
     Dosage: 50 G, EVERY 21 DAYS
     Route: 065
     Dates: start: 2014

REACTIONS (4)
  - Malaise [Recovered/Resolved]
  - Fatigue [Unknown]
  - Immunodeficiency [Unknown]
  - Off label use [Unknown]

NARRATIVE: CASE EVENT DATE: 20201002
